FAERS Safety Report 12512341 (Version 1)
Quarter: 2016Q2

REPORT INFORMATION
  Report Type: Spontaneous
  Country: US (occurrence: None)
  Receive Date: 20160629
  Receipt Date: 20160629
  Transmission Date: 20160815
  Serious: Yes (Disabling, Other)
  Sender: FDA-Public Use
  Company Number: None

PATIENT
  Age: 25 Year
  Sex: Female
  Weight: 49.9 kg

DRUGS (5)
  1. TRAZODONE 50MG TAB PLIVA 433, 50MG [Suspect]
     Active Substance: TRAZODONE HYDROCHLORIDE
     Indication: ANXIETY
     Route: 048
     Dates: start: 20160624, end: 20160626
  2. VENLAVAXENE [Concomitant]
  3. IBUPROFEN. [Concomitant]
     Active Substance: IBUPROFEN
  4. TRAZODONE 50MG TAB PLIVA 433, 50MG [Suspect]
     Active Substance: TRAZODONE HYDROCHLORIDE
     Indication: RESTLESS LEGS SYNDROME
     Route: 048
     Dates: start: 20160624, end: 20160626
  5. MIRTAZIPINE [Concomitant]
     Active Substance: MIRTAZAPINE

REACTIONS (2)
  - Panic attack [None]
  - Condition aggravated [None]

NARRATIVE: CASE EVENT DATE: 20160624
